FAERS Safety Report 13279692 (Version 1)
Quarter: 2017Q1

REPORT INFORMATION
  Report Type: Spontaneous
  Country: US (occurrence: US)
  Receive Date: 20170228
  Receipt Date: 20170228
  Transmission Date: 20170428
  Serious: Yes (Disabling, Other)
  Sender: FDA-Public Use
  Company Number: None

PATIENT
  Age: 2 Year
  Sex: Female
  Weight: 9.9 kg

DRUGS (2)
  1. PROBIOTIC [Concomitant]
     Active Substance: PROBIOTICS NOS
  2. POLYETHYLENE GLYCOL 3350. [Suspect]
     Active Substance: POLYETHYLENE GLYCOL 3350
     Indication: CONSTIPATION
     Route: 048
     Dates: start: 20160228, end: 20161225

REACTIONS (6)
  - Screaming [None]
  - Sleep disorder [None]
  - Abnormal behaviour [None]
  - Anger [None]
  - Tremor [None]
  - Aggression [None]

NARRATIVE: CASE EVENT DATE: 20160318
